FAERS Safety Report 9848926 (Version 2)
Quarter: 2014Q1

REPORT INFORMATION
  Report Type: Spontaneous
  Country: AR (occurrence: AR)
  Receive Date: 20140128
  Receipt Date: 20140128
  Transmission Date: 20141002
  Serious: Yes (Other)
  Sender: FDA-Public Use
  Company Number: AR-AMGEN-ARGSP2013075454

PATIENT
  Sex: Male

DRUGS (5)
  1. ENBREL [Suspect]
     Indication: PSORIATIC ARTHROPATHY
     Dosage: 50 MG, WEEKLY
     Route: 065
     Dates: start: 20061111
  2. METHOTREXATE SODIUM [Suspect]
     Indication: PSORIATIC ARTHROPATHY
     Dosage: 15 MG, WEEKLY
     Route: 065
     Dates: start: 2006
  3. DIAMICRON [Concomitant]
     Dosage: 1 DF, DAILY (HALF TABLET DAILY)
  4. GALVUS [Concomitant]
     Dosage: 1 DF, DAILY (1 TABLET DAILY)
  5. FOLIC ACID [Concomitant]
     Dosage: 5 MG, WEEKLY

REACTIONS (2)
  - Carotid artery occlusion [Not Recovered/Not Resolved]
  - Tooth fracture [Not Recovered/Not Resolved]
